FAERS Safety Report 22307434 (Version 3)
Quarter: 2023Q2

REPORT INFORMATION
  Report Type: Spontaneous
  Country: SG (occurrence: None)
  Receive Date: 20230511
  Receipt Date: 20230531
  Transmission Date: 20230722
  Serious: Yes (Death)
  Sender: FDA-Public Use
  Company Number: SG-ROCHE-3347787

PATIENT
  Age: 62 Year
  Sex: Female

DRUGS (2)
  1. TECENTRIQ [Suspect]
     Active Substance: ATEZOLIZUMAB
     Indication: Triple negative breast cancer
     Dosage: NEXT DOSE GIVEN ON 25/MAY/2021
     Route: 065
     Dates: start: 20210428
  2. TECENTRIQ [Suspect]
     Active Substance: ATEZOLIZUMAB
     Route: 065
     Dates: start: 20210525

REACTIONS (2)
  - Breast cancer metastatic [Fatal]
  - Disease progression [Unknown]

NARRATIVE: CASE EVENT DATE: 20210609
